FAERS Safety Report 25026360 (Version 2)
Quarter: 2025Q1

REPORT INFORMATION
  Report Type: Spontaneous
  Country: US (occurrence: US)
  Receive Date: 20250301
  Receipt Date: 20250331
  Transmission Date: 20250409
  Serious: No
  Sender: GLAXOSMITHKLINE
  Company Number: US-GSKCCFUS-Case-02223178_AE-121846

PATIENT
  Sex: Male

DRUGS (1)
  1. SUMATRIPTAN SUCCINATE [Suspect]
     Active Substance: SUMATRIPTAN SUCCINATE
     Indication: Migraine
     Route: 042

REACTIONS (4)
  - Migraine [Not Recovered/Not Resolved]
  - Wrong technique in device usage process [Unknown]
  - Expired product administered [Unknown]
  - Product complaint [Unknown]
